FAERS Safety Report 6316785-3 (Version None)
Quarter: 2009Q3

REPORT INFORMATION
  Report Type: 
  Country: None (occurrence: None)
  Receive Date: 20090820
  Receipt Date: 20090812
  Transmission Date: 20100115
  Serious: Yes (Other)
  Sender: FDA-Public Use
  Company Number: US-AMGEN-QUU357575

PATIENT
  Sex: Female

DRUGS (4)
  1. ENBREL [Suspect]
     Indication: ANKYLOSING SPONDYLITIS
     Route: 058
     Dates: start: 20081106
  2. DICLOFENAC SODIUM/ MISOPROSTOL [Concomitant]
     Dates: start: 20090130
  3. PANTOPRAZOLE SODIUM [Concomitant]
     Dates: start: 20090629
  4. PREDNISONE [Concomitant]
     Dates: start: 20060615

REACTIONS (6)
  - HYPERVENTILATION [None]
  - HYPOTENSION [None]
  - MUSCLE TIGHTNESS [None]
  - PAIN IN EXTREMITY [None]
  - PARAESTHESIA [None]
  - SYNCOPE [None]
